FAERS Safety Report 6181155-8 (Version None)
Quarter: 2009Q2

REPORT INFORMATION
  Report Type: 
  Country: None (occurrence: None)
  Receive Date: 20090504
  Receipt Date: 20090504
  Transmission Date: 20091009
  Serious: No
  Sender: FDA-Public Use
  Company Number: None

PATIENT
  Age: 67 Year
  Sex: Female
  Weight: 94 kg

DRUGS (2)
  1. ALTEPLASE 100 MG GENENTECH [Suspect]
     Indication: ISCHAEMIC STROKE
     Dosage: 8.46 MG ONCE IV BOLUS
     Route: 040
     Dates: start: 20090328, end: 20090328
  2. ALTEPLASE 100 MG GENENTECH [Suspect]
     Dosage: 76.14 MG ONCE IV DRIP
     Route: 041

REACTIONS (3)
  - BRAIN DEATH [None]
  - HAEMORRHAGE INTRACRANIAL [None]
  - UNRESPONSIVE TO STIMULI [None]
